FAERS Safety Report 6085401-0 (Version None)
Quarter: 2009Q1

REPORT INFORMATION
  Report Type: 
  Country: None (occurrence: None)
  Receive Date: 20090217
  Receipt Date: 20080813
  Transmission Date: 20090719
  Serious: Yes (Other)
  Sender: FDA-Public Use
  Company Number: 2008BH008681

PATIENT
  Age: 65 Year
  Sex: Female

DRUGS (1)
  1. EXTRANEAL [Suspect]
     Indication: PERITONEAL DIALYSIS
     Dosage: 2 L;EVERY DAY;IP
     Route: 033
     Dates: start: 20080403

REACTIONS (2)
  - CATHETER RELATED COMPLICATION [None]
  - PERITONITIS BACTERIAL [None]
